FAERS Safety Report 8073903-7 (Version None)
Quarter: 2012Q1

REPORT INFORMATION
  Report Type: 
  Country: None (occurrence: None)
  Receive Date: 20120126
  Receipt Date: 20120119
  Transmission Date: 20120608
  Serious: Yes (Hospitalization)
  Sender: FDA-Public Use
  Company Number: DE-BAYER-2012-006300

PATIENT
  Sex: Male

DRUGS (5)
  1. METOPROLOL TARTRATE [Suspect]
     Dosage: 100 MG, UNK
     Route: 048
     Dates: start: 20110901
  2. SEROQUEL [Suspect]
     Dosage: UNK
     Dates: start: 20110901
  3. AMLODIPINE BESYLATE AND VALSARTAN [Suspect]
     Dosage: UNK
     Route: 048
     Dates: start: 20110901
  4. SIMVASTATIN [Suspect]
     Dosage: UNK
     Dates: start: 20110901
  5. ASPIRIN [Suspect]
     Dosage: 100 MG, UNK
     Route: 048
     Dates: start: 20110901

REACTIONS (3)
  - DISORIENTATION [None]
  - ACIDOSIS [None]
  - SOMNOLENCE [None]
